FAERS Safety Report 9867974 (Version 1)
Quarter: 2014Q1

REPORT INFORMATION
  Report Type: Spontaneous
  Country: US (occurrence: None)
  Receive Date: 20140203
  Receipt Date: 20140203
  Transmission Date: 20141002
  Serious: Yes (Other)
  Sender: FDA-Public Use
  Company Number: None

PATIENT
  Sex: 0

DRUGS (1)
  1. ZOOM NITEWHITE [Suspect]
     Indication: DENTAL COSMETIC PROCEDURE
     Dosage: OVERNIGHT OR 4 TO 6 HOURS 3 TO 4 TIMES IN 2013

REACTIONS (1)
  - Candida infection [None]
